FAERS Safety Report 7895289-0 (Version None)
Quarter: 2011Q4

REPORT INFORMATION
  Report Type: 
  Country: None (occurrence: None)
  Receive Date: 20111106
  Receipt Date: 20110824
  Transmission Date: 20120403
  Serious: Yes (Hospitalization, Other)
  Sender: FDA-Public Use
  Company Number: US-AMGEN-USASP2011043336

PATIENT
  Age: 54 Year
  Sex: Female

DRUGS (1)
  1. ENBREL [Suspect]
     Indication: RHEUMATOID ARTHRITIS
     Dosage: UNK

REACTIONS (6)
  - BLINDNESS [None]
  - PNEUMONIA FUNGAL [None]
  - WOUND [None]
  - BACTERIAL INFECTION [None]
  - LIMB INJURY [None]
  - STAPHYLOCOCCAL INFECTION [None]
